FAERS Safety Report 21980032 (Version 2)
Quarter: 2023Q1

REPORT INFORMATION
  Report Type: Spontaneous
  Country: FR (occurrence: FR)
  Receive Date: 20230210
  Receipt Date: 20230320
  Transmission Date: 20230417
  Serious: Yes (Other)
  Sender: FDA-Public Use
  Company Number: FR-VERTEX PHARMACEUTICALS-2022-019116

PATIENT

DRUGS (30)
  1. ELEXACAFTOR\IVACAFTOR\TEZACAFTOR [Suspect]
     Active Substance: ELEXACAFTOR\IVACAFTOR\TEZACAFTOR
     Indication: Cystic fibrosis
     Dosage: UNKNOWN DOSAGE REGIMEN
     Route: 048
  2. KALYDECO [Suspect]
     Active Substance: IVACAFTOR
     Indication: Cystic fibrosis
     Dosage: UNKNOWN DOSAGE REGIMEN
     Route: 048
  3. ISOTRETINOIN [Suspect]
     Active Substance: ISOTRETINOIN
     Indication: Dermatitis acneiform
     Dosage: 5 MG DAILY
     Route: 048
     Dates: start: 20210722, end: 20210809
  4. ISOTRETINOIN [Suspect]
     Active Substance: ISOTRETINOIN
     Indication: Acne
     Dosage: 5 MG DAILY
     Route: 048
     Dates: start: 20210817, end: 20211002
  5. ISOTRETINOIN [Suspect]
     Active Substance: ISOTRETINOIN
     Indication: Acne pustular
     Dosage: 10 MG PER DAY
     Route: 048
     Dates: start: 20211002, end: 20211217
  6. ISOTRETINOIN [Suspect]
     Active Substance: ISOTRETINOIN
     Indication: Skin mass
     Dosage: 20 MG DAILY
     Route: 048
     Dates: start: 20211217, end: 20211230
  7. ISOTRETINOIN [Suspect]
     Active Substance: ISOTRETINOIN
     Dosage: 10 MG PER DAY
     Route: 048
     Dates: start: 20220117, end: 2022
  8. ISOTRETINOIN [Suspect]
     Active Substance: ISOTRETINOIN
     Dosage: 10 MG DAILY
     Route: 048
     Dates: start: 20220225, end: 20220325
  9. ISOTRETINOIN [Suspect]
     Active Substance: ISOTRETINOIN
     Dosage: 20 MG DAILY
     Route: 048
     Dates: start: 20220325, end: 20220522
  10. ISOTRETINOIN [Suspect]
     Active Substance: ISOTRETINOIN
     Dosage: 30 MG DAILY
     Route: 048
     Dates: start: 20220522, end: 20220630
  11. ISOTRETINOIN [Suspect]
     Active Substance: ISOTRETINOIN
     Dosage: 0.1-0.2 MG/KG/DAY
     Route: 048
  12. TRETINOIN [Suspect]
     Active Substance: TRETINOIN
     Indication: Dermatitis acneiform
     Dosage: CREAM
     Route: 061
     Dates: start: 20210722, end: 20210809
  13. TRETINOIN [Suspect]
     Active Substance: TRETINOIN
     Dosage: CREAM
     Route: 061
     Dates: start: 20210817, end: 20211230
  14. TRETINOIN [Suspect]
     Active Substance: TRETINOIN
     Dosage: UNK
     Route: 061
     Dates: start: 20220118
  15. AZITHROMYCIN [Concomitant]
     Active Substance: AZITHROMYCIN
     Indication: Dermatitis acneiform
     Dosage: 250 MG THRICE WEEKLY
  16. AZITHROMYCIN [Concomitant]
     Active Substance: AZITHROMYCIN
     Indication: Acne
     Dosage: INCREASED DOSE TO 500 MG THRICE WEEKLY
  17. AZITHROMYCIN [Concomitant]
     Active Substance: AZITHROMYCIN
     Indication: Acne pustular
  18. AZITHROMYCIN [Concomitant]
     Active Substance: AZITHROMYCIN
     Indication: Skin mass
  19. LYMECYCLINE [Concomitant]
     Active Substance: LYMECYCLINE
     Indication: Dermatitis acneiform
  20. VITAMIN K1 [Concomitant]
     Active Substance: PHYTONADIONE
  21. PHYTONADIONE [Concomitant]
     Active Substance: PHYTONADIONE
  22. .ALPHA.-TOCOPHEROL ACETATE, D- [Concomitant]
     Active Substance: .ALPHA.-TOCOPHEROL ACETATE, D-
  23. SERETIDE [Concomitant]
     Active Substance: FLUTICASONE PROPIONATE\SALMETEROL XINAFOATE
  24. CREON [Concomitant]
     Active Substance: PANCRELIPASE AMYLASE\PANCRELIPASE LIPASE\PANCRELIPASE PROTEASE
  25. NUCALA [Concomitant]
     Active Substance: MEPOLIZUMAB
  26. OROCAL [Concomitant]
  27. OMEPRAZOLE [Concomitant]
     Active Substance: OMEPRAZOLE
  28. CHOLECALCIFEROL [Concomitant]
     Active Substance: CHOLECALCIFEROL
  29. FERROUS FUMARATE [Concomitant]
     Active Substance: FERROUS FUMARATE
  30. URSODIOL [Concomitant]
     Active Substance: URSODIOL

REACTIONS (20)
  - Rash maculo-papular [Unknown]
  - Alanine aminotransferase increased [Unknown]
  - Aspartate aminotransferase increased [Unknown]
  - Blood creatine phosphokinase increased [Recovered/Resolved]
  - Rhabdomyolysis [Recovered/Resolved]
  - Blood alkaline phosphatase increased [Recovered/Resolved]
  - Dry skin [Recovered/Resolved]
  - Lip dry [Recovered/Resolved]
  - Hepatic cytolysis [Unknown]
  - Dermatitis acneiform [Unknown]
  - Seborrhoea [Unknown]
  - Acne pustular [Unknown]
  - Skin mass [Unknown]
  - Post inflammatory pigmentation change [Unknown]
  - Scar [Unknown]
  - Tinea versicolour [Unknown]
  - Anxiety [Unknown]
  - Bacterial infection [Unknown]
  - Folliculitis [Unknown]
  - Acne [Unknown]

NARRATIVE: CASE EVENT DATE: 20210809
